FAERS Safety Report 16776286 (Version 1)
Quarter: 2019Q3

REPORT INFORMATION
  Report Type: Report from Study
  Country: JP (occurrence: JP)
  Receive Date: 20190905
  Receipt Date: 20190905
  Transmission Date: 20191005
  Serious: Yes (Other)
  Sender: FDA-Public Use
  Company Number: JP-ROCHE-2402584

PATIENT

DRUGS (1)
  1. CLONAZEPAM. [Suspect]
     Active Substance: CLONAZEPAM
     Indication: SEIZURE
     Route: 048

REACTIONS (3)
  - Drug ineffective [Unknown]
  - Seizure [Unknown]
  - Disease progression [Unknown]
